FAERS Safety Report 6527746-3 (Version None)
Quarter: 2010Q1

REPORT INFORMATION
  Report Type: 
  Country: None (occurrence: None)
  Receive Date: 20100106
  Receipt Date: 20100104
  Transmission Date: 20100710
  Serious: Yes (Hospitalization)
  Sender: FDA-Public Use
  Company Number: FR-WYE-G05263810

PATIENT
  Sex: Male
  Weight: 23 kg

DRUGS (6)
  1. ADVIL LIQUI-GELS [Suspect]
     Indication: INFLUENZA
     Dosage: ONE SINGLE DOSE
     Route: 048
     Dates: start: 20091204, end: 20091204
  2. VENTOLIN [Concomitant]
     Dosage: UNKNOWN
     Route: 048
  3. TAMIFLU [Suspect]
     Indication: INFLUENZA
     Dosage: ONE SINGLE DOSE OF 45 MG
     Route: 048
     Dates: start: 20091204, end: 20091204
  4. DOLIPRANE [Concomitant]
     Indication: INFLUENZA
     Dosage: UNKNOWN
     Route: 048
     Dates: start: 20091204
  5. RHINOFLUIMUCIL [Suspect]
     Indication: INFLUENZA
     Dosage: UNKNOWN
     Route: 045
     Dates: start: 20091204, end: 20091204
  6. TOPLEXIL [Concomitant]
     Indication: INFLUENZA
     Dosage: UNKNOWN
     Route: 048
     Dates: start: 20091204

REACTIONS (3)
  - ANGIOEDEMA [None]
  - LYMPHADENOPATHY [None]
  - WHEEZING [None]
